FAERS Safety Report 4305058-6 (Version None)
Quarter: 2004Q1

REPORT INFORMATION
  Report Type: 
  Country: None (occurrence: None)
  Receive Date: 20040225
  Receipt Date: 20040225
  Transmission Date: 20041129
  Serious: Yes (Hospitalization)
  Sender: FDA-Public Use
  Company Number: None

PATIENT
  Age: 66 Year
  Sex: Male
  Weight: 50.3493 kg

DRUGS (2)
  1. COMBIVIR [Suspect]
     Indication: HIV INFECTION
     Dosage: (1) PO BID
     Route: 048
     Dates: start: 20021201
  2. SUSTIVA [Concomitant]

REACTIONS (2)
  - APLASTIC ANAEMIA [None]
  - LEUKOPENIA [None]
